FAERS Safety Report 22053238 (Version 2)
Quarter: 2023Q2

REPORT INFORMATION
  Report Type: Spontaneous
  Country: ES (occurrence: ES)
  Receive Date: 20230302
  Receipt Date: 20230404
  Transmission Date: 20230722
  Serious: Yes (Other)
  Sender: FDA-Public Use
  Company Number: ES-BECTON DICKINSON-ES-BD-23-000035

PATIENT
  Age: 36 Year
  Sex: Female

DRUGS (2)
  1. CHLORAPREP WITH TINT [Suspect]
     Active Substance: CHLORHEXIDINE GLUCONATE\ISOPROPYL ALCOHOL
     Indication: Lesion excision
     Dosage: 10 MILLILITER, UNK
     Route: 061
     Dates: start: 20221019, end: 20221019
  2. CHLORAPREP WITH TINT [Suspect]
     Active Substance: CHLORHEXIDINE GLUCONATE\ISOPROPYL ALCOHOL
     Indication: Infection prophylaxis

REACTIONS (4)
  - Burns third degree [Recovered/Resolved with Sequelae]
  - Accident [Recovered/Resolved]
  - Product caught fire [Recovered/Resolved]
  - Product use issue [Recovered/Resolved]

NARRATIVE: CASE EVENT DATE: 20221019
